FAERS Safety Report 6191038-5 (Version None)
Quarter: 2009Q2

REPORT INFORMATION
  Report Type: 
  Country: None (occurrence: None)
  Receive Date: 20090513
  Receipt Date: 20090429
  Transmission Date: 20091009
  Serious: Yes (Other)
  Sender: FDA-Public Use
  Company Number: DSA_27649_2006

PATIENT
  Sex: Female
  Weight: 72.5755 kg

DRUGS (6)
  1. ATIVAN [Suspect]
     Indication: ANXIETY
     Dosage: (OF ORAL)
     Route: 048
     Dates: start: 20060101
  2. ATIVAN [Suspect]
     Indication: CONVULSION
     Dosage: (OF ORAL)
     Route: 048
     Dates: start: 20060101
  3. ATIVAN [Suspect]
     Indication: MUSCLE RELAXANT THERAPY
     Dosage: (OF ORAL)
     Route: 048
     Dates: start: 20060101
  4. ATIVAN [Suspect]
     Indication: PANIC DISORDER
     Dosage: (OF ORAL)
     Route: 048
     Dates: start: 20060101
  5. ATIVAN [Suspect]
     Indication: ANXIETY
     Dosage: (OF ORAL)
     Route: 048
     Dates: start: 19860101
  6. CLONOPIN [Concomitant]

REACTIONS (50)
  - ANAL SPHINCTER ATONY [None]
  - ANOREXIA [None]
  - ANXIETY [None]
  - APPARENT DEATH [None]
  - AUTONOMIC NEUROPATHY [None]
  - BLADDER DISORDER [None]
  - BLOOD POTASSIUM ABNORMAL [None]
  - BLOOD SODIUM ABNORMAL [None]
  - BLOOD SODIUM DECREASED [None]
  - BREAST PAIN [None]
  - BREAST SWELLING [None]
  - CONSTIPATION [None]
  - CONVULSION [None]
  - DEAFNESS [None]
  - DEPRESSION [None]
  - DIVERTICULITIS [None]
  - DRUG DEPENDENCE [None]
  - DRUG INEFFECTIVE [None]
  - DYSPEPSIA [None]
  - DYSURIA [None]
  - ELECTROENCEPHALOGRAM ABNORMAL [None]
  - FATIGUE [None]
  - FLUID RETENTION [None]
  - GAIT DISTURBANCE [None]
  - GASTROINTESTINAL DISORDER [None]
  - GASTROINTESTINAL MOTILITY DISORDER [None]
  - GENERAL PHYSICAL HEALTH DETERIORATION [None]
  - HYPOACUSIS [None]
  - INFLAMMATION [None]
  - LOCAL SWELLING [None]
  - LYMPHADENOPATHY [None]
  - MALAISE [None]
  - MUSCLE DISORDER [None]
  - MUSCLE RIGIDITY [None]
  - MYALGIA [None]
  - NEURALGIA [None]
  - OEDEMA [None]
  - PAIN IN EXTREMITY [None]
  - PANIC REACTION [None]
  - PARALYSIS [None]
  - POLLAKIURIA [None]
  - PRODUCT SUBSTITUTION ISSUE [None]
  - RENAL DISORDER [None]
  - RETCHING [None]
  - SEDATION [None]
  - SOMNOLENCE [None]
  - SWELLING [None]
  - THERAPEUTIC RESPONSE DELAYED [None]
  - TINNITUS [None]
  - URINE OUTPUT DECREASED [None]
